FAERS Safety Report 18406844 (Version 1)
Quarter: 2020Q4

REPORT INFORMATION
  Report Type: Not Available
  Country: US (occurrence: US)
  Receive Date: 20201021
  Receipt Date: 20201021
  Transmission Date: 20210114
  Serious: No
  Sender: FDA-Public Use
  Company Number: US-NEUROCRINE BIOSCIENCES INC.-2020NBI03680

PATIENT
  Age: 65 Year
  Sex: Female

DRUGS (17)
  1. CYMBALTA [Concomitant]
     Active Substance: DULOXETINE HYDROCHLORIDE
  2. PRAVASTATIN. [Concomitant]
     Active Substance: PRAVASTATIN
  3. TRAJENTA [Concomitant]
     Active Substance: LINAGLIPTIN
  4. OXYBUTYNIN. [Concomitant]
     Active Substance: OXYBUTYNIN CHLORIDE
  5. VITAMIN D [Concomitant]
     Active Substance: VITAMIN D NOS
  6. CLONAZEPAM. [Concomitant]
     Active Substance: CLONAZEPAM
  7. ARNUITY ELLIPTA [Concomitant]
     Active Substance: FLUTICASONE FUROATE
  8. VITAMIN C [Concomitant]
     Active Substance: ASCORBIC ACID
  9. LYRICA [Concomitant]
     Active Substance: PREGABALIN
  10. LANTUS [Concomitant]
     Active Substance: INSULIN GLARGINE
  11. LOSARTAN. [Concomitant]
     Active Substance: LOSARTAN
  12. DICYCLOMINE [Concomitant]
     Active Substance: DICYCLOMINE HYDROCHLORIDE
  13. INGREZZA [Suspect]
     Active Substance: VALBENAZINE
     Indication: TARDIVE DYSKINESIA
     Route: 048
  14. NABUMETONE. [Concomitant]
     Active Substance: NABUMETONE
  15. NEXIUM [Concomitant]
     Active Substance: ESOMEPRAZOLE MAGNESIUM
  16. METFORMIN [Concomitant]
     Active Substance: METFORMIN HYDROCHLORIDE
  17. LATUDA [Concomitant]
     Active Substance: LURASIDONE HYDROCHLORIDE

REACTIONS (1)
  - Somnolence [Unknown]
